FAERS Safety Report 9378895 (Version 1)
Quarter: 2013Q2

REPORT INFORMATION
  Report Type: Spontaneous
  Country: US (occurrence: None)
  Receive Date: 20130626
  Receipt Date: 20130626
  Transmission Date: 20140414
  Serious: No
  Sender: FDA-Public Use
  Company Number: CC 13-0578

PATIENT
  Age: 29 Year
  Sex: Male

DRUGS (1)
  1. KETOCONAZOLE [Suspect]
     Indication: DANDRUFF
     Dates: start: 201302, end: 201305

REACTIONS (2)
  - Dandruff [None]
  - Condition aggravated [None]
